FAERS Safety Report 11637337 (Version 1)
Quarter: 2015Q4

REPORT INFORMATION
  Report Type: Spontaneous
  Country: US (occurrence: US)
  Receive Date: 20151016
  Receipt Date: 20151016
  Transmission Date: 20160304
  Serious: Yes (Hospitalization, Other)
  Sender: FDA-Public Use
  Company Number: US-TEVA-600595USA

PATIENT
  Age: 92 Year
  Sex: Female
  Weight: 62.2 kg

DRUGS (6)
  1. SUTENT [Interacting]
     Active Substance: SUNITINIB MALATE
     Indication: ABDOMINAL NEOPLASM
     Dosage: 25 MILLIGRAM DAILY;
     Route: 048
     Dates: start: 20150827, end: 20150922
  2. LOSARTAN POTASSIUM W/HYDROCHLOROTHIAZIDE [Concomitant]
     Active Substance: HYDROCHLOROTHIAZIDE\LOSARTAN POTASSIUM
     Dosage: 50/12.5 MG
     Route: 048
  3. ATORVASTATIN [Concomitant]
     Active Substance: ATORVASTATIN
     Indication: PERIPHERAL VASCULAR DISORDER
     Dosage: 10 MILLIGRAM DAILY;
  4. CILOSTAZOL. [Concomitant]
     Active Substance: CILOSTAZOL
     Dosage: 200 GBQ DAILY;
     Route: 048
  5. WARFARIN [Suspect]
     Active Substance: WARFARIN
     Route: 065
  6. METOPROLOL [Concomitant]
     Active Substance: METOPROLOL
     Indication: CARDIAC DISORDER
     Dosage: 100 MILLIGRAM DAILY;

REACTIONS (6)
  - Asthenia [Unknown]
  - Intra-abdominal haemorrhage [Recovering/Resolving]
  - Drug interaction [Recovering/Resolving]
  - Decreased appetite [Unknown]
  - Internal haemorrhage [Recovering/Resolving]
  - Abdominal discomfort [Unknown]

NARRATIVE: CASE EVENT DATE: 20150924
